FAERS Safety Report 10962463 (Version 2)
Quarter: 2015Q2

REPORT INFORMATION
  Report Type: Spontaneous
  Country: US (occurrence: US)
  Receive Date: 20150327
  Receipt Date: 20150511
  Transmission Date: 20150821
  Serious: Yes (Other)
  Sender: FDA-Public Use
  Company Number: US-GLAXOSMITHKLINE-US2015GSK040006

PATIENT
  Sex: Female

DRUGS (2)
  1. VERAMYST [Suspect]
     Active Substance: FLUTICASONE FUROATE
     Indication: MULTIPLE ALLERGIES
  2. FLUTICASONE FUROATE [Suspect]
     Active Substance: FLUTICASONE FUROATE
     Dosage: UNK, U

REACTIONS (4)
  - Pancreatic carcinoma [Unknown]
  - Adverse reaction [Unknown]
  - Malignant splenic neoplasm [Unknown]
  - Surgery [Unknown]

NARRATIVE: CASE EVENT DATE: 2014
